FAERS Safety Report 9377330 (Version 3)
Quarter: 2013Q3

REPORT INFORMATION
  Report Type: Report from Study
  Country: BR (occurrence: BR)
  Receive Date: 20130701
  Receipt Date: 20130722
  Transmission Date: 20140515
  Serious: Yes (Other)
  Sender: FDA-Public Use
  Company Number: PHHY2013BR067780

PATIENT
  Age: 89 Year
  Sex: Female
  Weight: 78 kg

DRUGS (7)
  1. DIOVAN AMLO FIX [Suspect]
     Indication: BLOOD PRESSURE
     Dosage: 1 DF (320/5MG) DAILY
     Route: 048
  2. HUMALOG MIX [Concomitant]
     Indication: DIABETES MELLITUS
     Dosage: 58 IU, DAILY
     Route: 058
  3. SOMALGIN [Concomitant]
     Indication: CARDIAC DISORDER
     Dosage: 100 MG, DAILY
     Route: 048
  4. CRESTOR [Concomitant]
     Indication: BLOOD CHOLESTEROL ABNORMAL
     Dosage: 1 DF, DAILY
     Route: 048
  5. GARDENAL ^AVENTIS^ [Concomitant]
     Indication: EPILEPSY
     Dosage: 1 DF, DAILY
     Route: 048
  6. METHOTREXATE [Concomitant]
     Indication: RHEUMATIC DISORDER
     Dosage: 1 DF, QW
     Route: 048
  7. ENDOFOLIN [Concomitant]
     Dosage: 1 DF, QW
     Route: 048

REACTIONS (3)
  - Breast cancer [Not Recovered/Not Resolved]
  - Blood pressure abnormal [Not Recovered/Not Resolved]
  - Nervousness [Unknown]
